FAERS Safety Report 7210669-4 (Version None)
Quarter: 2011Q1

REPORT INFORMATION
  Report Type: 
  Country: None (occurrence: None)
  Receive Date: 20110105
  Receipt Date: 20101230
  Transmission Date: 20110831
  Serious: No
  Sender: FDA-Public Use
  Company Number: US-PFIZER INC-2010182469

PATIENT
  Sex: Female
  Weight: 70.748 kg

DRUGS (3)
  1. LYRICA [Suspect]
     Indication: POST HERPETIC NEURALGIA
     Dosage: 300 MG, 3X/DAY
     Dates: start: 20100901
  2. LYRICA [Suspect]
     Dosage: 300 MG, 3X/DAY
  3. LYRICA [Suspect]
     Indication: HERPES ZOSTER
     Dosage: 450 MG, 3X/DAY
     Dates: start: 20100101

REACTIONS (4)
  - WEIGHT INCREASED [None]
  - TREMOR [None]
  - ALOPECIA [None]
  - HEART RATE INCREASED [None]
